FAERS Safety Report 8117122-4 (Version None)
Quarter: 2012Q1

REPORT INFORMATION
  Report Type: 
  Country: None (occurrence: None)
  Receive Date: 20120206
  Receipt Date: 20120130
  Transmission Date: 20120608
  Serious: Yes (Hospitalization, Other)
  Sender: FDA-Public Use
  Company Number: US-ABBOTT-12P-163-0889196-00

PATIENT
  Sex: Male
  Weight: 57.7 kg

DRUGS (16)
  1. MULTI-VITAMIN [Concomitant]
     Indication: PRODUCT USED FOR UNKNOWN INDICATION
     Dates: start: 20000101
  2. TESTOSTERONE [Concomitant]
     Indication: PRODUCT USED FOR UNKNOWN INDICATION
     Dates: start: 20110901
  3. CALCIUM + VITAMIN D [Concomitant]
     Indication: PRODUCT USED FOR UNKNOWN INDICATION
     Dates: start: 20110607
  4. RECLAST [Concomitant]
     Indication: PRODUCT USED FOR UNKNOWN INDICATION
     Dates: start: 20110810
  5. HUMIRA [Suspect]
     Dosage: 40 MG ON DAY 24
     Dates: start: 20111210, end: 20111215
  6. VEDOLIZUMAB [Suspect]
     Indication: CROHN'S DISEASE
     Route: 042
     Dates: start: 20110909, end: 20110909
  7. FOLIC ACID [Concomitant]
     Indication: PRODUCT USED FOR UNKNOWN INDICATION
     Dates: start: 20101201
  8. HUMIRA [Suspect]
     Dosage: 80MG LOADING DOSE DAY 15
     Dates: start: 20111201, end: 20111201
  9. ASPIRIN [Concomitant]
     Indication: PRODUCT USED FOR UNKNOWN INDICATION
     Dates: start: 20050101
  10. METOPROLOL [Concomitant]
     Indication: PRODUCT USED FOR UNKNOWN INDICATION
     Dates: start: 20050101
  11. PROTONIX [Concomitant]
     Indication: PRODUCT USED FOR UNKNOWN INDICATION
     Dates: start: 20111120
  12. HUMIRA [Suspect]
     Indication: CROHN'S DISEASE
     Dosage: 160 MG LOADING DOSE ON DAY 1
     Route: 058
     Dates: start: 20111117, end: 20111117
  13. ENALAPRIL MALEATE [Concomitant]
     Indication: PRODUCT USED FOR UNKNOWN INDICATION
     Dates: start: 20111128
  14. VICODIN [Concomitant]
     Indication: PRODUCT USED FOR UNKNOWN INDICATION
     Dates: start: 20110715
  15. ASACOL [Concomitant]
     Indication: PRODUCT USED FOR UNKNOWN INDICATION
     Dates: start: 20101101
  16. LOMOTIL [Concomitant]
     Indication: PRODUCT USED FOR UNKNOWN INDICATION
     Dates: start: 20110621

REACTIONS (14)
  - SPUTUM DISCOLOURED [None]
  - NEOPLASM MALIGNANT [None]
  - BUNDLE BRANCH BLOCK LEFT [None]
  - OXYGEN SATURATION DECREASED [None]
  - ALVEOLITIS ALLERGIC [None]
  - ADVERSE DRUG REACTION [None]
  - PNEUMONIA [None]
  - OSTEOSCLEROSIS [None]
  - WEIGHT DECREASED [None]
  - PRODUCTIVE COUGH [None]
  - THYROID MASS [None]
  - RESPIRATORY TRACT INFLAMMATION [None]
  - DYSPNOEA EXERTIONAL [None]
  - DECREASED APPETITE [None]
